FAERS Safety Report 5659509-5 (Version None)
Quarter: 2008Q1

REPORT INFORMATION
  Report Type: 
  Country: None (occurrence: None)
  Receive Date: 20080311
  Receipt Date: 20080229
  Transmission Date: 20080703
  Serious: Yes (Other)
  Sender: FDA-Public Use
  Company Number: CA-JNJFOC-20080300482

PATIENT
  Sex: Female
  Weight: 55.4 kg

DRUGS (1)
  1. REMICADE [Suspect]
     Indication: CROHN'S DISEASE
     Dosage: 51 INFUSIONS
     Route: 042

REACTIONS (3)
  - DYSPHAGIA [None]
  - EXPRESSIVE LANGUAGE DISORDER [None]
  - EYE DISORDER [None]
